FAERS Safety Report 7067959-8 (Version None)
Quarter: 2010Q4

REPORT INFORMATION
  Report Type: 
  Country: None (occurrence: None)
  Receive Date: 20101027
  Receipt Date: 20101027
  Transmission Date: 20110411
  Serious: Yes (Other)
  Sender: FDA-Public Use
  Company Number: None

PATIENT
  Sex: Female

DRUGS (2)
  1. LEVOXYL [Suspect]
     Indication: BASEDOW'S DISEASE
  2. LEVOXYL [Suspect]
     Indication: HYPOTHYROIDISM

REACTIONS (1)
  - BLOOD THYROID STIMULATING HORMONE ABNORMAL [None]
